FAERS Safety Report 14142752 (Version 2)
Quarter: 2017Q4

REPORT INFORMATION
  Report Type: Report from Study
  Country: US (occurrence: US)
  Receive Date: 20171030
  Receipt Date: 20171120
  Transmission Date: 20180321
  Serious: Yes (Hospitalization)
  Sender: FDA-Public Use
  Company Number: US-ASTRAZENECA-2017SF10233

PATIENT
  Age: 22493 Day
  Sex: Male
  Weight: 81.2 kg

DRUGS (20)
  1. ADXS11-001 [Suspect]
     Active Substance: INVESTIGATIONAL PRODUCT
     Indication: PAPILLOMA VIRAL INFECTION
     Route: 042
     Dates: start: 20171019
  2. SYNTHROID [Concomitant]
     Active Substance: LEVOTHYROXINE SODIUM
     Dates: start: 2014
  3. MEDI4736 [Suspect]
     Active Substance: DURVALUMAB
     Indication: HEAD AND NECK CANCER
     Route: 042
     Dates: start: 20171019
  4. VITAMIN B COMPLEX [Concomitant]
     Active Substance: CYANOCOBALAMIN\DEXPANTHENOL\NIACINAMIDE\PYRIDOXINE HYDROCHLORIDE\RIBOFLAVIN 5^-PHOSPHATE SODIUM\THIAMINE HYDROCHLORIDE\VITAMIN B COMPLEX
     Dates: start: 1987
  5. MEDI4736 [Suspect]
     Active Substance: DURVALUMAB
     Indication: PAPILLOMA VIRAL INFECTION
     Route: 042
     Dates: start: 20170914
  6. MEDI4736 [Suspect]
     Active Substance: DURVALUMAB
     Indication: PAPILLOMA VIRAL INFECTION
     Route: 042
     Dates: start: 20170928
  7. GUAIFENESIN AND CODEINE PHOSPHATE [Concomitant]
     Active Substance: CODEINE PHOSPHATE\GUAIFENESIN
     Dates: start: 20170830
  8. GINGER. [Concomitant]
     Active Substance: GINGER
     Dates: start: 2015
  9. COMPAZINE [Concomitant]
     Active Substance: PROCHLORPERAZINE MALEATE
     Dates: start: 2012
  10. ZINC. [Concomitant]
     Active Substance: ZINC
     Dates: start: 2012
  11. MEDI4736 [Suspect]
     Active Substance: DURVALUMAB
     Indication: PAPILLOMA VIRAL INFECTION
     Route: 042
     Dates: start: 20171019
  12. ADXS11-001 [Suspect]
     Active Substance: INVESTIGATIONAL PRODUCT
     Indication: PAPILLOMA VIRAL INFECTION
     Route: 042
     Dates: start: 20170914
  13. ADXS11-001 [Suspect]
     Active Substance: INVESTIGATIONAL PRODUCT
     Indication: HEAD AND NECK CANCER
     Route: 042
     Dates: start: 20170928
  14. ADXS11-001 [Suspect]
     Active Substance: INVESTIGATIONAL PRODUCT
     Indication: HEAD AND NECK CANCER
     Route: 042
     Dates: start: 20171019
  15. NYSTATIN. [Concomitant]
     Active Substance: NYSTATIN
     Dates: start: 20170303
  16. MEDI4736 [Suspect]
     Active Substance: DURVALUMAB
     Indication: HEAD AND NECK CANCER
     Route: 042
     Dates: start: 20170914
  17. MEDI4736 [Suspect]
     Active Substance: DURVALUMAB
     Indication: HEAD AND NECK CANCER
     Route: 042
     Dates: start: 20170928
  18. ADXS11-001 [Suspect]
     Active Substance: INVESTIGATIONAL PRODUCT
     Indication: HEAD AND NECK CANCER
     Route: 042
     Dates: start: 20170914
  19. ADXS11-001 [Suspect]
     Active Substance: INVESTIGATIONAL PRODUCT
     Indication: PAPILLOMA VIRAL INFECTION
     Route: 042
     Dates: start: 20170928
  20. TYLENOL [Concomitant]
     Active Substance: ACETAMINOPHEN
     Dates: start: 2007

REACTIONS (1)
  - Infusion related reaction [Recovering/Resolving]

NARRATIVE: CASE EVENT DATE: 20171019
